FAERS Safety Report 9417740 (Version 2)
Quarter: 2013Q3

REPORT INFORMATION
  Report Type: Spontaneous
  Country: JP (occurrence: None)
  Receive Date: 20130719
  Receipt Date: 20130816
  Transmission Date: 20140515
  Serious: Yes (Other)
  Sender: FDA-Public Use
  Company Number: SYM-2013-06799

PATIENT
  Sex: 0

DRUGS (4)
  1. FLOUROURACIL [Suspect]
     Indication: OESOPHAGEAL CARCINOMA
     Dosage: 400 MG/M2. DAILY, INTRAVENOS (NOT OTERWISE SPECIFIED)
     Route: 042
  2. CISPLATIN [Suspect]
     Indication: OESOPHAGEAL CARCINOMA
     Dosage: 040 MG/M2, EVERY OTHER WEEK, INTRAVENOUS (NOT OTHERWISE SPECIFIED)
     Route: 042
  3. DOCETAXEL [Suspect]
     Indication: OESOPHAGEAL CARCINOMA
     Dosage: 35 MG/M2, EVERY OTHER WEERK, INTRAVENOUS (NO OTHERWISE SPECIFIED)
     Route: 042
  4. THERAPEUTIC RADIOPHARMACEUTICALS [Suspect]
     Indication: OESOPHAGEAL CARCINOMA

REACTIONS (2)
  - Aortic aneurysm [None]
  - Toxicity to various agents [None]
